FAERS Safety Report 4378898-5 (Version None)
Quarter: 2004Q2

REPORT INFORMATION
  Report Type: 
  Country: None (occurrence: None)
  Receive Date: 20040616
  Receipt Date: 20040405
  Transmission Date: 20050107
  Serious: Yes (Life-Threatening, Other)
  Sender: FDA-Public Use
  Company Number: PR-MERCK-0404USA00403

PATIENT
  Sex: Female
  Weight: 114 kg

DRUGS (2)
  1. [THERAPY UNSPECIFIED] [Concomitant]
     Route: 065
  2. PRIMAXIN [Suspect]
     Route: 042

REACTIONS (1)
  - STATUS EPILEPTICUS [None]
